FAERS Safety Report 9781361 (Version 1)
Quarter: 2013Q4

REPORT INFORMATION
  Report Type: Spontaneous
  Country: US (occurrence: None)
  Receive Date: 20131223
  Receipt Date: 20131223
  Transmission Date: 20140711
  Serious: Yes (Hospitalization)
  Sender: FDA-Public Use
  Company Number: None

PATIENT
  Age: 87 Year
  Sex: Female

DRUGS (1)
  1. FORTEO PEN [Suspect]
     Indication: OSTEOPOROSIS
     Route: 058

REACTIONS (1)
  - Diverticulitis [None]
